FAERS Safety Report 15200295 (Version 1)
Quarter: 2018Q3

REPORT INFORMATION
  Report Type: Spontaneous
  Country: GR (occurrence: GR)
  Receive Date: 20180726
  Receipt Date: 20180726
  Transmission Date: 20181010
  Serious: No
  Sender: FDA-Public Use
  Company Number: GR-LUPIN PHARMACEUTICALS INC.-2018-03308

PATIENT
  Age: 12 Year
  Sex: Female

DRUGS (5)
  1. LAMOTRIGINE. [Suspect]
     Active Substance: LAMOTRIGINE
     Indication: EPILEPSY
     Dosage: UNK, REACHED A DOSE OF 50MG BD
     Route: 065
     Dates: start: 2009
  2. LEVETIRACETAM. [Suspect]
     Active Substance: LEVETIRACETAM
     Indication: EPILEPSY
     Dosage: 800 MG, BID
     Route: 065
     Dates: start: 200807
  3. TOPIRAMATE. [Suspect]
     Active Substance: TOPIRAMATE
     Dosage: 75 MG, BID, UP TO 75MG BD
     Route: 065
     Dates: end: 200807
  4. LAMOTRIGINE. [Suspect]
     Active Substance: LAMOTRIGINE
     Dosage: 50 MG, BID, REACHED A DOSE OF 50MG BD
     Route: 065
     Dates: start: 2009, end: 2009
  5. TOPIRAMATE. [Suspect]
     Active Substance: TOPIRAMATE
     Indication: EPILEPSY
     Dosage: 75 MG, BID, UP TO 75MG BD
     Route: 065
     Dates: start: 200805

REACTIONS (2)
  - Rash [Unknown]
  - Drug ineffective [Unknown]
